FAERS Safety Report 8332202-6 (Version None)
Quarter: 2012Q2

REPORT INFORMATION
  Report Type: 
  Country: None (occurrence: None)
  Receive Date: 20120503
  Receipt Date: 20120424
  Transmission Date: 20120825
  Serious: Yes (Hospitalization)
  Sender: FDA-Public Use
  Company Number: AU-BIOGENIDEC-2012BI014891

PATIENT
  Age: 74 Year
  Sex: Female

DRUGS (1)
  1. AVONEX [Suspect]
     Indication: MULTIPLE SCLEROSIS
     Route: 030

REACTIONS (6)
  - FALL [None]
  - TIBIA FRACTURE [None]
  - BODY TEMPERATURE [None]
  - INFLUENZA [None]
  - ANKLE FRACTURE [None]
  - MULTIPLE SCLEROSIS [None]
